FAERS Safety Report 6619709-4 (Version None)
Quarter: 2010Q1

REPORT INFORMATION
  Report Type: 
  Country: None (occurrence: None)
  Receive Date: 20100309
  Receipt Date: 20100224
  Transmission Date: 20100710
  Serious: Yes (Other)
  Sender: FDA-Public Use
  Company Number: PHEH2009US17434

PATIENT
  Sex: Female

DRUGS (4)
  1. RECLAST [Suspect]
     Indication: OSTEOPOROSIS
     Dosage: UNK, UNK
     Dates: start: 20090901, end: 20090901
  2. CALCIUM [Concomitant]
  3. GLUCOSAMINE W/CHONDROITIN [Concomitant]
  4. VITAMIN B-12 [Concomitant]

REACTIONS (5)
  - BONE DISORDER [None]
  - FALL [None]
  - WRIST DEFORMITY [None]
  - WRIST FRACTURE [None]
  - WRIST SURGERY [None]
